FAERS Safety Report 7086230-1 (Version None)
Quarter: 2010Q4

REPORT INFORMATION
  Report Type: 
  Country: None (occurrence: None)
  Receive Date: 20101027
  Receipt Date: 20101020
  Transmission Date: 20110411
  Serious: Yes (Disabling, Other)
  Sender: FDA-Public Use
  Company Number: DSA_43854_2010

PATIENT
  Sex: Female

DRUGS (1)
  1. XENAZINE [Suspect]
     Indication: HUNTINGTON'S DISEASE
     Dosage: (25 MG TID ORAL)
     Route: 048
     Dates: end: 20100801

REACTIONS (4)
  - ACTIVITIES OF DAILY LIVING IMPAIRED [None]
  - ANXIETY [None]
  - INSOMNIA [None]
  - WEIGHT DECREASED [None]
